FAERS Safety Report 14071685 (Version 2)
Quarter: 2018Q1

REPORT INFORMATION
  Report Type: Spontaneous
  Country: US (occurrence: US)
  Receive Date: 20171010
  Receipt Date: 20180105
  Transmission Date: 20180508
  Serious: No
  Sender: FDA-Public Use
  Company Number: US-SA-2017SA152045

PATIENT
  Age: 53 Year
  Sex: Male
  Weight: 99.7 kg

DRUGS (1)
  1. DUPIXENT [Suspect]
     Active Substance: DUPILUMAB
     Route: 058
     Dates: start: 20170701, end: 20170815

REACTIONS (8)
  - Skin lesion [Not Recovered/Not Resolved]
  - Eye irritation [Recovered/Resolved]
  - Ocular hyperaemia [Recovered/Resolved]
  - Influenza like illness [Recovered/Resolved]
  - Condition aggravated [Not Recovered/Not Resolved]
  - Mouth ulceration [Recovered/Resolved]
  - Blister [Not Recovered/Not Resolved]
  - Ocular hyperaemia [Not Recovered/Not Resolved]

NARRATIVE: CASE EVENT DATE: 2017
